FAERS Safety Report 25502689 (Version 1)
Quarter: 2025Q3

REPORT INFORMATION
  Report Type: Spontaneous
  Country: EU (occurrence: None)
  Receive Date: 20250702
  Receipt Date: 20250702
  Transmission Date: 20251021
  Serious: Yes (Hospitalization, Other)
  Sender: MAIA PHARMACEUTICALS
  Company Number: EU-MAIA Pharmaceuticals, Inc.-MAI202506-000078

PATIENT
  Age: 50 Year
  Sex: Female

DRUGS (1)
  1. LEVOTHYROXINE SODIUM [Suspect]
     Active Substance: LEVOTHYROXINE SODIUM
     Indication: Supplementation therapy
     Route: 065

REACTIONS (5)
  - Thyrotoxic cardiomyopathy [Recovered/Resolved]
  - Cardiogenic shock [Recovered/Resolved]
  - Cardiac failure acute [Recovering/Resolving]
  - Pulmonary embolism [Recovering/Resolving]
  - Cardiac ventricular thrombosis [Recovered/Resolved]
